FAERS Safety Report 11119261 (Version 7)
Quarter: 2017Q1

REPORT INFORMATION
  Report Type: Spontaneous
  Country: US (occurrence: US)
  Receive Date: 20150518
  Receipt Date: 20170331
  Transmission Date: 20170428
  Serious: Yes (Other)
  Sender: FDA-Public Use
  Company Number: US-PFIZER INC-2015165293

PATIENT
  Age: 65 Year
  Sex: Female
  Weight: 84.64 kg

DRUGS (21)
  1. SUTENT [Suspect]
     Active Substance: SUNITINIB MALATE
     Dosage: 800 MG, UNK (FOR 1 WEEK )
     Route: 048
     Dates: end: 20150506
  2. SUTENT [Suspect]
     Active Substance: SUNITINIB MALATE
     Indication: RENAL CELL CARCINOMA
     Dosage: 50 MG, 1 CAPSULE, DAILY, 4 WEEKS ON AND 2 WEEKS OFF
     Route: 048
     Dates: start: 20150416, end: 20150506
  3. SUTENT [Suspect]
     Active Substance: SUNITINIB MALATE
     Dosage: 50 MG, CYCLIC (2 WEEKS ON, 1 WEEK OFF)
     Route: 048
     Dates: start: 20151223
  4. SUTENT [Suspect]
     Active Substance: SUNITINIB MALATE
     Dosage: 50 MG, CYCLIC (2 WEEKS ON/1 WEEK OFF)
  5. HYDRALAZINE [Concomitant]
     Active Substance: HYDRALAZINE HYDROCHLORIDE
     Indication: HYPERTENSION
     Dosage: 100 MG, AS NEEDED (TID)
     Route: 048
  6. PROMETHAZINE [Concomitant]
     Active Substance: PROMETHAZINE\PROMETHAZINE HYDROCHLORIDE
     Indication: VOMITING
  7. ATENOLOL. [Concomitant]
     Active Substance: ATENOLOL
     Indication: HYPERTENSION
     Dosage: 50 MG, 1X/DAY
     Route: 048
  8. CLONIDINE. [Concomitant]
     Active Substance: CLONIDINE
     Indication: BLOOD PRESSURE ABNORMAL
     Dosage: 0.4 MG, DAILY, 0.1 MG IN MORNING, 0.3MG AT BEDTIME
  9. SUTENT [Suspect]
     Active Substance: SUNITINIB MALATE
     Dosage: 50 MG, CYCLIC (2 WEEKS ON, 1 WEEK OFF)
     Route: 048
     Dates: end: 20160615
  10. SUTENT [Suspect]
     Active Substance: SUNITINIB MALATE
     Dosage: 400 MG, UNK (FOR 1 WEEK )
     Route: 048
  11. SUTENT [Suspect]
     Active Substance: SUNITINIB MALATE
     Indication: RENAL CANCER
     Dosage: UNK
     Dates: start: 20151111
  12. CLONIDINE. [Concomitant]
     Active Substance: CLONIDINE
     Indication: HYPERTENSION
     Dosage: 0.3 MG, 1X/DAY
  13. OMEPRAZOLE. [Concomitant]
     Active Substance: OMEPRAZOLE
     Indication: GASTROOESOPHAGEAL REFLUX DISEASE
     Dosage: 20 MG, 1X/DAY
     Route: 048
  14. LISINOPRIL. [Concomitant]
     Active Substance: LISINOPRIL
     Indication: HYPERTENSION
     Dosage: 40 MG, 1X/DAY
     Route: 048
  15. LISINOPRIL. [Concomitant]
     Active Substance: LISINOPRIL
     Indication: DIURETIC THERAPY
  16. FLUOXETINE [Concomitant]
     Active Substance: FLUOXETINE HYDROCHLORIDE
     Indication: DEPRESSION
     Dosage: 25 MG, 1X/DAY
     Route: 048
  17. SPIRIVA [Concomitant]
     Active Substance: TIOTROPIUM BROMIDE MONOHYDRATE
     Dosage: 1 DF, AS NEEDED (NEEDED EVERYDAY)
     Route: 045
  18. SUTENT [Suspect]
     Active Substance: SUNITINIB MALATE
     Dosage: 200 MG, UNK (FOR 1 WEEK )
     Route: 048
     Dates: start: 20150416
  19. ATIVAN [Concomitant]
     Active Substance: LORAZEPAM
     Indication: ANXIETY
     Dosage: 1 MG, AS NEEDED (EVERY 6 HOURS)
     Route: 048
  20. PROMETHAZINE [Concomitant]
     Active Substance: PROMETHAZINE\PROMETHAZINE HYDROCHLORIDE
     Indication: NAUSEA
     Dosage: UNK (50 MG), AS NEEDED, (TAKE HALF TO ONE TABLET, EVERY 4-6 HOURS)
  21. FLUOXETINE [Concomitant]
     Active Substance: FLUOXETINE HYDROCHLORIDE
     Indication: ANXIETY

REACTIONS (8)
  - Off label use [Unknown]
  - Renal cell carcinoma [Unknown]
  - Hypertension [Not Recovered/Not Resolved]
  - Condition aggravated [Not Recovered/Not Resolved]
  - Leukocytosis [Unknown]
  - Nausea [Recovered/Resolved]
  - Disease progression [Unknown]
  - Pyrexia [Recovered/Resolved]

NARRATIVE: CASE EVENT DATE: 20151104
